FAERS Safety Report 9164827 (Version 1)
Quarter: 2013Q1

REPORT INFORMATION
  Report Type: Spontaneous
  Country: IN (occurrence: None)
  Receive Date: 20130222
  Receipt Date: 20130222
  Transmission Date: 20140127
  Serious: Yes (Hospitalization)
  Sender: FDA-Public Use
  Company Number: KAD201302-000223

PATIENT
  Age: 40 Year
  Sex: Male

DRUGS (9)
  1. AMPHOTERICIN B [Suspect]
  2. MANNITOL [Suspect]
  3. FLUCONAZOLE [Suspect]
     Route: 048
  4. TENOFOVIR [Suspect]
  5. EMTRICITABINE [Suspect]
  6. NEVIRAPINE [Suspect]
  7. STAVUDINE [Suspect]
  8. LAMIVUDINE [Suspect]
  9. TRIMETHOPRIM/SULFAMETHOXAZOLE [Suspect]

REACTIONS (9)
  - Immune reconstitution inflammatory syndrome [None]
  - Abdominal pain upper [None]
  - Anaemia [None]
  - Cytomegalovirus chorioretinitis [None]
  - Hydrocephalus [None]
  - Toxoplasmosis [None]
  - CSF protein increased [None]
  - CSF glucose increased [None]
  - Cryptococcosis [None]
